FAERS Safety Report 6704429-8 (Version None)
Quarter: 2010Q2

REPORT INFORMATION
  Report Type: 
  Country: None (occurrence: None)
  Receive Date: 20100423
  Receipt Date: 20100318
  Transmission Date: 20101027
  Serious: No
  Sender: FDA-Public Use
  Company Number: ALL1-2010-00683

PATIENT
  Age: 10 Year
  Sex: Male
  Weight: 36.3 kg

DRUGS (3)
  1. VYVANSE [Suspect]
     Indication: ATTENTION DEFICIT/HYPERACTIVITY DISORDER
     Dosage: 30 MG, 1X/DAY:QD, ORAL, 20 MG, 1XDAY;QD, ORAL, HALF 20MG CAPSULE, 1X/DAY:QD, ORAL
     Route: 048
     Dates: start: 20080101, end: 20080101
  2. VYVANSE [Suspect]
     Indication: ATTENTION DEFICIT/HYPERACTIVITY DISORDER
     Dosage: 30 MG, 1X/DAY:QD, ORAL, 20 MG, 1XDAY;QD, ORAL, HALF 20MG CAPSULE, 1X/DAY:QD, ORAL
     Route: 048
     Dates: start: 20100201, end: 20100201
  3. VYVANSE [Suspect]
     Indication: ATTENTION DEFICIT/HYPERACTIVITY DISORDER
     Dosage: 30 MG, 1X/DAY:QD, ORAL, 20 MG, 1XDAY;QD, ORAL, HALF 20MG CAPSULE, 1X/DAY:QD, ORAL
     Route: 048
     Dates: start: 20100201

REACTIONS (6)
  - ANGER [None]
  - CHANGE IN SUSTAINED ATTENTION [None]
  - DRUG EFFECT INCREASED [None]
  - INCORRECT DOSE ADMINISTERED [None]
  - INSOMNIA [None]
  - MOOD ALTERED [None]
